FAERS Safety Report 14240103 (Version 2)
Quarter: 2017Q4

REPORT INFORMATION
  Report Type: Report from Study
  Country: FR (occurrence: FR)
  Receive Date: 20171130
  Receipt Date: 20171211
  Transmission Date: 20180321
  Serious: Yes (Death, Hospitalization, Other)
  Sender: FDA-Public Use
  Company Number: FR-SEATTLE GENETICS-2017SGN01011

PATIENT
  Age: 75 Year
  Sex: Female

DRUGS (12)
  1. BRENTUXIMAB VEDOTIN [Suspect]
     Active Substance: BRENTUXIMAB VEDOTIN
     Dosage: 88 MG, UNK
     Route: 042
     Dates: start: 20170109
  2. PREDNISOLONE. [Concomitant]
     Active Substance: PREDNISOLONE
     Indication: LYMPHOMA
     Dosage: UNK
     Route: 042
     Dates: start: 20161126
  3. BRENTUXIMAB VEDOTIN [Suspect]
     Active Substance: BRENTUXIMAB VEDOTIN
     Dosage: 86 MG, UNK
     Route: 042
     Dates: start: 20170220
  4. BRENTUXIMAB VEDOTIN [Suspect]
     Active Substance: BRENTUXIMAB VEDOTIN
     Dosage: 88 MG, UNK
     Route: 042
     Dates: start: 20161220
  5. CYCLOPHOSPHAMIDE. [Concomitant]
     Active Substance: CYCLOPHOSPHAMIDE
     Indication: LYMPHOMA
     Dosage: UNK
     Route: 042
     Dates: start: 20161126
  6. DOXORUBICIN [Concomitant]
     Active Substance: DOXORUBICIN
     Dosage: UNK
     Route: 042
     Dates: start: 20161126, end: 20170313
  7. BRENTUXIMAB VEDOTIN [Suspect]
     Active Substance: BRENTUXIMAB VEDOTIN
     Indication: ENTEROPATHY-ASSOCIATED T-CELL LYMPHOMA
     Dosage: 83 MG, UNK
     Route: 042
     Dates: start: 20161126
  8. DOXORUBICIN [Concomitant]
     Active Substance: DOXORUBICIN
     Indication: LYMPHOMA
     Dosage: UNK
     Route: 042
     Dates: start: 20161126
  9. CYCLOPHOSPHAMIDE. [Concomitant]
     Active Substance: CYCLOPHOSPHAMIDE
     Dosage: UNK
     Route: 042
     Dates: start: 20161126, end: 20170313
  10. BRENTUXIMAB VEDOTIN [Suspect]
     Active Substance: BRENTUXIMAB VEDOTIN
     Dosage: 88 MG, UNK
     Route: 042
     Dates: start: 20170130
  11. PREDNISOLONE. [Concomitant]
     Active Substance: PREDNISOLONE
     Dosage: UNK
     Route: 042
     Dates: start: 20161126, end: 20170313
  12. BRENTUXIMAB VEDOTIN [Suspect]
     Active Substance: BRENTUXIMAB VEDOTIN
     Dosage: 86 MG, UNK
     Route: 042
     Dates: start: 20170313, end: 20170313

REACTIONS (15)
  - Asthenia [Fatal]
  - Normocytic anaemia [Fatal]
  - Bicytopenia [Unknown]
  - Device related infection [Unknown]
  - Tachycardia [Fatal]
  - Malabsorption [Unknown]
  - Weight increased [Unknown]
  - Weight decreased [Unknown]
  - Off label use [Unknown]
  - Diarrhoea [Fatal]
  - Hypotension [Fatal]
  - Electrolyte imbalance [Unknown]
  - General physical health deterioration [Fatal]
  - Thrombocytopenia [Fatal]
  - Colitis microscopic [Unknown]

NARRATIVE: CASE EVENT DATE: 20161126
